FAERS Safety Report 3299018 (Version 3)
Quarter: 2013Q2

REPORT INFORMATION
  Report Type: Spontaneous
  Country: US (occurrence: US)
  Receive Date: 19990121
  Receipt Date: 20130610
  Transmission Date: 20140414
  Serious: No
  Sender: FDA-Public Use
  Company Number: 1998SUS0117

PATIENT
  Age: 2 Year
  Sex: Female
  Weight: 13 kg

DRUGS (3)
  1. SUSTIVA [Suspect]
     Indication: HIV INFECTION
     Dosage: 200 MG AES#DOSE_FREQUENCY: QD
     Route: 048
     Dates: start: 19981023, end: 19981104
  2. ZERIT [Suspect]
     Indication: HIV INFECTION
     Dosage: AES#DOSE_SP_01: 15 MG Q12H
     Route: 048
     Dates: start: 19981023, end: 19981106
  3. VIDEX [Suspect]
     Indication: HIV INFECTION
     Route: 048
     Dates: start: 19981023, end: 19981106

REACTIONS (3)
  - Swelling face [Unknown]
  - Rash maculo-papular [Recovered/Resolved]
  - Pyrexia [Unknown]
